FAERS Safety Report 7226749-3 (Version None)
Quarter: 2011Q1

REPORT INFORMATION
  Report Type: 
  Country: None (occurrence: None)
  Receive Date: 20110110
  Receipt Date: 20110110
  Transmission Date: 20110831
  Serious: Yes (Life-Threatening)
  Sender: FDA-Public Use
  Company Number: None

PATIENT
  Age: 62 Year
  Sex: Female
  Weight: 77.3 kg

DRUGS (1)
  1. MULTAQ [Suspect]
     Dosage: 1/DAAY

REACTIONS (3)
  - FATIGUE [None]
  - LETHARGY [None]
  - HEART RATE DECREASED [None]
